FAERS Safety Report 19052101 (Version 1)
Quarter: 2021Q1

REPORT INFORMATION
  Report Type: Spontaneous
  Country: FR (occurrence: FR)
  Receive Date: 20210324
  Receipt Date: 20210324
  Transmission Date: 20210420
  Serious: Yes (Life-Threatening)
  Sender: FDA-Public Use
  Company Number: FR-PFIZER INC-2021282398

PATIENT
  Age: 65 Year
  Sex: Male
  Weight: 100 kg

DRUGS (6)
  1. PERINDOPRIL BIOGARAN [Suspect]
     Active Substance: PERINDOPRIL ERBUMINE
     Indication: HYPERTENSION
     Dosage: 1 DF, 1X/DAY
     Route: 048
     Dates: start: 20210125, end: 20210212
  2. ATORVASTATIN CALCIUM. [Suspect]
     Active Substance: ATORVASTATIN CALCIUM
     Indication: HYPERCHOLESTEROLAEMIA
     Dosage: 1 DF, 1X/DAY
     Route: 048
     Dates: start: 20210125, end: 20210212
  3. BISOPROLOL BIOGARAN [Suspect]
     Active Substance: BISOPROLOL FUMARATE
     Indication: DISEASE RISK FACTOR
     Dosage: 1 DF, 1X/DAY
     Route: 048
     Dates: start: 20210125, end: 20210212
  4. FUROSEMIDE BIOGARAN [Suspect]
     Active Substance: FUROSEMIDE
     Indication: POLYURIA
     Dosage: 1 DF, 1X/DAY
     Route: 048
     Dates: start: 20210125, end: 20210212
  5. XARELTO [Suspect]
     Active Substance: RIVAROXABAN
     Indication: ANTICOAGULANT THERAPY
     Dosage: 2 DF, 1X/DAY
     Route: 048
     Dates: start: 20210125, end: 20210212
  6. PANTOPRAZOLE [Concomitant]
     Active Substance: PANTOPRAZOLE
     Dosage: UNK

REACTIONS (3)
  - Shock haemorrhagic [Recovering/Resolving]
  - Haematemesis [Recovered/Resolved with Sequelae]
  - Melaena [Not Recovered/Not Resolved]

NARRATIVE: CASE EVENT DATE: 20210205
